FAERS Safety Report 10384703 (Version 2)
Quarter: 2014Q3

REPORT INFORMATION
  Report Type: Report from Study
  Country: DE (occurrence: DE)
  Receive Date: 20140814
  Receipt Date: 20140814
  Transmission Date: 20150326
  Serious: Yes (Hospitalization, Other)
  Sender: FDA-Public Use
  Company Number: DE-US-EMD SERONO, INC.-7282623

PATIENT
  Sex: Female
  Weight: 85 kg

DRUGS (6)
  1. CO-DIOVAN [Concomitant]
     Active Substance: HYDROCHLOROTHIAZIDE\VALSARTAN
     Indication: HYPERTENSION
     Dosage: 80 MG/12.5 MG
     Route: 048
     Dates: start: 2013
  2. FAMPRIDINE [Suspect]
     Active Substance: DALFAMPRIDINE
     Indication: PRODUCT USED FOR UNKNOWN INDICATION
     Dates: start: 20130829
  3. CARMEN [Concomitant]
     Active Substance: LERCANIDIPINE
     Indication: HYPERTENSION
     Route: 048
     Dates: start: 2013
  4. REBIF [Suspect]
     Active Substance: INTERFERON BETA-1A
     Indication: MULTIPLE SCLEROSIS
     Route: 058
     Dates: start: 20130829, end: 20130908
  5. FAMPRIDINE [Suspect]
     Active Substance: DALFAMPRIDINE
     Dates: start: 20130912
  6. BELOC ZOK [Concomitant]
     Active Substance: METOPROLOL SUCCINATE
     Indication: HYPERTENSION
     Route: 048
     Dates: start: 2013

REACTIONS (22)
  - Quadriplegia [Recovered/Resolved]
  - C-reactive protein increased [Recovered/Resolved]
  - Blood triglycerides increased [Unknown]
  - Blood uric acid increased [Unknown]
  - Headache [Unknown]
  - Essential hypertension [Unknown]
  - Metrorrhagia [Recovered/Resolved]
  - Lymphocyte count decreased [Not Recovered/Not Resolved]
  - Secondary progressive multiple sclerosis [Recovered/Resolved]
  - Blood calcium increased [Unknown]
  - Low density lipoprotein increased [Unknown]
  - Mean cell haemoglobin decreased [Not Recovered/Not Resolved]
  - Mean cell volume decreased [Recovering/Resolving]
  - White blood cell count increased [Recovering/Resolving]
  - Varicella virus test positive [Unknown]
  - Red blood cell count increased [Recovering/Resolving]
  - Platelet count increased [Recovering/Resolving]
  - Neutrophil count increased [Not Recovered/Not Resolved]
  - Spinal cord injury cervical [Recovered/Resolved]
  - JC virus infection [Unknown]
  - Paraesthesia [Recovered/Resolved]
  - Blood cholesterol increased [Unknown]
